FAERS Safety Report 16265531 (Version 1)
Quarter: 2019Q2

REPORT INFORMATION
  Report Type: Spontaneous
  Country: US (occurrence: US)
  Receive Date: 20190502
  Receipt Date: 20190502
  Transmission Date: 20190711
  Serious: No
  Sender: FDA-Public Use
  Company Number: US-BAUSCH-BL-2019-012027

PATIENT
  Sex: Female
  Weight: 118.04 kg

DRUGS (2)
  1. SILIQ [Suspect]
     Active Substance: BRODALUMAB
     Indication: PSORIASIS
     Dosage: AT WEEK 0,1, AND 2
     Route: 058
     Dates: start: 20181220
  2. SILIQ [Suspect]
     Active Substance: BRODALUMAB
     Dosage: THEN EVERY 2 WEEKS THEREAFTER
     Route: 058
     Dates: end: 201904

REACTIONS (1)
  - Maternal exposure during pregnancy [Unknown]

NARRATIVE: CASE EVENT DATE: 2019
